FAERS Safety Report 4273585-6 (Version None)
Quarter: 2004Q1

REPORT INFORMATION
  Report Type: 
  Country: None (occurrence: None)
  Receive Date: 20040116
  Receipt Date: 20040116
  Transmission Date: 20041129
  Serious: Yes (Other)
  Sender: FDA-Public Use
  Company Number: None

PATIENT
  Age: 71 Year
  Sex: Male

DRUGS (1)
  1. GLYBURIDE [Suspect]
     Dosage: 10 MG AC 5 MG HS

REACTIONS (2)
  - HYPOGLYCAEMIA [None]
  - RENAL FAILURE [None]
